FAERS Safety Report 5453877-5 (Version None)
Quarter: 2007Q3

REPORT INFORMATION
  Report Type: 
  Country: None (occurrence: None)
  Receive Date: 20070917
  Receipt Date: 20070907
  Transmission Date: 20080115
  Serious: Yes (Hospitalization)
  Sender: FDA-Public Use
  Company Number: B0486773A

PATIENT
  Age: 43 Year
  Sex: Female

DRUGS (4)
  1. LAPATINIB [Suspect]
     Dosage: 1250MG PER DAY
     Route: 048
     Dates: start: 20070820
  2. CAPECITABINE [Suspect]
     Dosage: 1000MGM2 PER DAY
     Route: 048
     Dates: start: 20070820
  3. LOPERAMIDE HCL [Concomitant]
     Indication: NAUSEA
     Dosage: 2MG AS REQUIRED
     Route: 048
  4. DOMPERIDONE [Concomitant]
     Dosage: 10MG AS REQUIRED
     Route: 048

REACTIONS (5)
  - DEHYDRATION [None]
  - HAEMOGLOBIN DECREASED [None]
  - HYPERKALAEMIA [None]
  - NAUSEA [None]
  - VOMITING [None]
